FAERS Safety Report 21783465 (Version 5)
Quarter: 2023Q1

REPORT INFORMATION
  Report Type: Spontaneous
  Country: AU (occurrence: AU)
  Receive Date: 20221227
  Receipt Date: 20230306
  Transmission Date: 20230417
  Serious: Yes (Hospitalization, Other)
  Sender: FDA-Public Use
  Company Number: AU-OTSUKA-2022_055614

PATIENT
  Age: 25 Year
  Sex: Female

DRUGS (16)
  1. ARIPIPRAZOLE [Suspect]
     Active Substance: ARIPIPRAZOLE
     Indication: Thinking abnormal
     Dosage: 20 MG, QD
     Route: 048
     Dates: start: 20210623, end: 20220505
  2. ARIPIPRAZOLE [Suspect]
     Active Substance: ARIPIPRAZOLE
     Indication: Behaviour disorder
  3. ARIPIPRAZOLE [Suspect]
     Active Substance: ARIPIPRAZOLE
     Indication: Affective disorder
  4. ABILIFY MAINTENA [Suspect]
     Active Substance: ARIPIPRAZOLE
     Indication: Affective disorder
     Dosage: 400 MG, QM
     Route: 065
     Dates: start: 20210623, end: 20220505
  5. ABILIFY MAINTENA [Suspect]
     Active Substance: ARIPIPRAZOLE
     Indication: Behaviour disorder
  6. ABILIFY MAINTENA [Suspect]
     Active Substance: ARIPIPRAZOLE
     Indication: Thinking abnormal
  7. OLANZAPINE [Suspect]
     Active Substance: OLANZAPINE
     Indication: Emotional disorder
     Dosage: 5 MG, QD
     Route: 048
     Dates: start: 20201003, end: 20220530
  8. OLANZAPINE [Suspect]
     Active Substance: OLANZAPINE
     Indication: Thinking abnormal
     Dosage: 5 MG, QD
     Route: 048
     Dates: start: 20220813, end: 20220823
  9. AMISULPRIDE [Suspect]
     Active Substance: AMISULPRIDE
     Indication: Thinking abnormal
     Dosage: 1200 MG, QD
     Route: 048
     Dates: start: 20220819, end: 20220821
  10. CLOZARIL [Suspect]
     Active Substance: CLOZAPINE
     Indication: Schizophrenia
     Dosage: 250 MG
     Route: 048
     Dates: start: 20220524
  11. CLOZARIL [Suspect]
     Active Substance: CLOZAPINE
     Indication: Psychotic symptom
     Dosage: 250 MG, QD
     Route: 048
     Dates: start: 20220518, end: 20220704
  12. ZUCLOPENTHIXOL [Suspect]
     Active Substance: ZUCLOPENTHIXOL
     Indication: Thinking abnormal
     Dosage: 400 MG (INTERVAL 2 WEEKS)
     Route: 065
     Dates: start: 20220610
  13. ZUCLOPENTHIXOL [Suspect]
     Active Substance: ZUCLOPENTHIXOL
     Indication: Affective disorder
  14. ZUCLOPENTHIXOL [Suspect]
     Active Substance: ZUCLOPENTHIXOL
     Indication: Behaviour disorder
  15. LURASIDONE [Concomitant]
     Active Substance: LURASIDONE
     Indication: Psychotic symptom
     Dosage: 160 MG, QD
     Route: 048
  16. ESCITALOPRAM [Concomitant]
     Active Substance: ESCITALOPRAM OXALATE
     Indication: Product used for unknown indication
     Dosage: 10 MG, QD
     Route: 048

REACTIONS (11)
  - Mental disorder [Unknown]
  - Mental impairment [Unknown]
  - Red cell distribution width increased [Unknown]
  - General physical health deterioration [Unknown]
  - Psychotic disorder [Unknown]
  - White blood cell count decreased [Recovered/Resolved]
  - Neutrophil count decreased [Recovered/Resolved]
  - Extrapyramidal disorder [Unknown]
  - Symptom recurrence [Unknown]
  - Drug ineffective [Unknown]
  - Product use in unapproved indication [Unknown]

NARRATIVE: CASE EVENT DATE: 20220525
